FAERS Safety Report 4921496-2 (Version None)
Quarter: 2006Q1

REPORT INFORMATION
  Report Type: 
  Country: None (occurrence: None)
  Receive Date: 20060224
  Receipt Date: 20060215
  Transmission Date: 20060701
  Serious: Yes (Death, Hospitalization)
  Sender: FDA-Public Use
  Company Number: US-JNJFOC-20060203846

PATIENT
  Age: 70 Year
  Sex: Female

DRUGS (1)
  1. REMICADE [Suspect]
     Indication: DRUG USE FOR UNKNOWN INDICATION
     Dosage: RECEIVED A TOTAL OF THREE INFLIXIMAB INFUSIONS.
     Route: 042

REACTIONS (3)
  - DEATH [None]
  - PNEUMONIA [None]
  - SYNCOPE [None]
